FAERS Safety Report 8079440-8 (Version None)
Quarter: 2012Q1

REPORT INFORMATION
  Report Type: 
  Country: None (occurrence: None)
  Receive Date: 20120128
  Receipt Date: 20110823
  Transmission Date: 20120608
  Serious: No
  Sender: FDA-Public Use
  Company Number: US-ABBOTT-11P-163-0848747-00

PATIENT
  Age: 70 Year
  Sex: Female

DRUGS (4)
  1. PREP FOR CT SCAN [Suspect]
     Dosage: NOT REPORTED
     Dates: start: 20110818, end: 20110818
  2. ZOCOR [Concomitant]
     Indication: PRODUCT USED FOR UNKNOWN INDICATION
     Dosage: ONCE DAILY
  3. HUMIRA [Suspect]
     Indication: RHEUMATOID ARTHRITIS
     Dates: start: 20091101
  4. AMLODIPINE [Concomitant]
     Indication: HYPERTENSION
     Dosage: ONCE DAILY

REACTIONS (4)
  - ASTHENIA [None]
  - VOMITING [None]
  - RETCHING [None]
  - DIARRHOEA [None]
